FAERS Safety Report 24560130 (Version 1)
Quarter: 2024Q4

REPORT INFORMATION
  Report Type: Spontaneous
  Country: CN (occurrence: CN)
  Receive Date: 20241029
  Receipt Date: 20241029
  Transmission Date: 20250115
  Serious: Yes (Other)
  Sender: JIANGSU HANSOH PHARMACEUTICAL
  Company Number: CN-Jiangsu Hansoh Pharmaceutical Co., Ltd-2164013

PATIENT
  Age: 46 Year
  Sex: Female
  Weight: 70 kg

DRUGS (3)
  1. AZACITIDINE [Suspect]
     Active Substance: AZACITIDINE
     Indication: Acute myeloid leukaemia
     Dates: start: 20240912, end: 20240918
  2. IDARUBICIN HYDROCHLORIDE [Suspect]
     Active Substance: IDARUBICIN HYDROCHLORIDE
     Dates: start: 20240914, end: 20240918
  3. CYTARABINE [Suspect]
     Active Substance: CYTARABINE
     Dates: start: 20240914, end: 20240922

REACTIONS (6)
  - Myelosuppression [Recovering/Resolving]
  - Vomiting [Unknown]
  - Listless [Unknown]
  - Body temperature increased [Unknown]
  - Chills [Unknown]
  - Immunodeficiency [Unknown]

NARRATIVE: CASE EVENT DATE: 20240924
